FAERS Safety Report 14115516 (Version 1)
Quarter: 2017Q4

REPORT INFORMATION
  Report Type: Other
  Country: GB (occurrence: GB)
  Receive Date: 20171023
  Receipt Date: 20171023
  Transmission Date: 20180321
  Serious: Yes (Life-Threatening, Hospitalization, Other)
  Sender: FDA-Public Use
  Company Number: GB-HERITAGE PHARMACEUTICALS-2017HTG00310

PATIENT
  Age: 52 Year
  Sex: Male

DRUGS (24)
  1. FLUOXETINE [Suspect]
     Active Substance: FLUOXETINE HYDROCHLORIDE
     Indication: DEPRESSION
     Dosage: 20 MG, UNK
     Route: 048
     Dates: start: 20120813
  2. BISOPROLOL [Suspect]
     Active Substance: BISOPROLOL
     Dosage: 40 MG, ONCE
     Dates: start: 20141201, end: 20141201
  3. PARACETAMOL [Suspect]
     Active Substance: ACETAMINOPHEN
     Dosage: UNK
     Dates: start: 20140510, end: 20140521
  4. TRAMADOL. [Concomitant]
     Active Substance: TRAMADOL
     Dosage: 50 TO 100 MG, EVERY 4 HOURS AS NEEDED
     Route: 048
     Dates: start: 20140416
  5. FLUOXETINE [Suspect]
     Active Substance: FLUOXETINE HYDROCHLORIDE
     Dosage: UNK
     Route: 048
     Dates: start: 20141201, end: 20141217
  6. IBUPROFEN. [Suspect]
     Active Substance: IBUPROFEN
     Dosage: UNK
     Dates: start: 20141119
  7. CLOPIDOGREL [Suspect]
     Active Substance: CLOPIDOGREL BISULFATE
     Dosage: UNK
     Dates: start: 20131008
  8. ATORVASTATIN [Concomitant]
     Active Substance: ATORVASTATIN
     Dosage: UNK
     Dates: start: 20140101, end: 20140330
  9. CODEINE PHOSPHATE [Concomitant]
     Active Substance: CODEINE PHOSPHATE
     Dosage: 30 MG, 4X/DAY AS NEEDED
     Route: 048
     Dates: start: 20140416
  10. FLUOXETINE [Suspect]
     Active Substance: FLUOXETINE HYDROCHLORIDE
     Dosage: 400 MG, ONCE
     Route: 048
     Dates: start: 20141201, end: 20141201
  11. ASPIRIN. [Suspect]
     Active Substance: ASPIRIN
     Dosage: 3600 MG, ONCE
     Dates: start: 20141201, end: 20141201
  12. RAMIPRIL. [Suspect]
     Active Substance: RAMIPRIL
     Dosage: UNK
     Dates: start: 20131010
  13. RAMIPRIL. [Suspect]
     Active Substance: RAMIPRIL
     Dosage: 140 MG, ONCE
     Dates: start: 20141201, end: 20141201
  14. FUROSEMIDE. [Concomitant]
     Active Substance: FUROSEMIDE
  15. CO-AMOXICLAV [Concomitant]
     Active Substance: AMOXICILLIN\CLAVULANIC ACID
     Dosage: 1200 MG, 3X/DAY
     Route: 042
     Dates: start: 20140416, end: 20140418
  16. AMLODIPINE [Suspect]
     Active Substance: AMLODIPINE BESYLATE
     Dosage: UNK
     Dates: start: 20101001
  17. AMLODIPINE [Suspect]
     Active Substance: AMLODIPINE BESYLATE
     Dosage: 200 MG, ONCE
     Dates: start: 20141201, end: 20141201
  18. ASPIRIN. [Suspect]
     Active Substance: ASPIRIN
     Dosage: UNK
     Dates: start: 20131008
  19. BISOPROLOL [Suspect]
     Active Substance: BISOPROLOL
     Dosage: UNK
     Dates: start: 20131008
  20. IBUPROFEN. [Suspect]
     Active Substance: IBUPROFEN
     Dosage: 3200 MG, ONCE
     Dates: start: 20141201, end: 20141201
  21. ANADIN [Suspect]
     Active Substance: IBUPROFEN
     Dosage: 3200 MG, UNK
  22. ATORVASTATIN [Concomitant]
     Active Substance: ATORVASTATIN
     Dosage: UNK
     Dates: start: 20131008, end: 20131219
  23. CO-AMOXICLAV [Concomitant]
     Active Substance: AMOXICILLIN\CLAVULANIC ACID
     Dosage: 625 MG, 3X/DAY
     Route: 048
     Dates: start: 20140418, end: 20140423
  24. GLYCERYL TRINITRATE [Concomitant]
     Active Substance: NITROGLYCERIN
     Dosage: UNK
     Dates: start: 20131008

REACTIONS (14)
  - Myocardial infarction [Unknown]
  - Syncope [Recovered/Resolved]
  - Vomiting [Recovered/Resolved]
  - Radial nerve compression [Recovered/Resolved]
  - Intentional overdose [Recovered/Resolved]
  - Hypotension [Recovered/Resolved]
  - Tendon disorder [Recovered/Resolved]
  - Acute coronary syndrome [Unknown]
  - Suicide attempt [Recovered/Resolved]
  - Diarrhoea haemorrhagic [Recovered/Resolved]
  - Tobacco abuse [Recovered/Resolved]
  - Overdose [Unknown]
  - Depressed mood [Unknown]
  - Bradycardia [Recovered/Resolved]

NARRATIVE: CASE EVENT DATE: 2013
